FAERS Safety Report 9448913 (Version 1)
Quarter: 2013Q3

REPORT INFORMATION
  Report Type: Spontaneous
  Country: CA (occurrence: CA)
  Receive Date: 20130808
  Receipt Date: 20130808
  Transmission Date: 20140515
  Serious: Yes (Hospitalization, Other)
  Sender: FDA-Public Use
  Company Number: CA-009507513-1307CAN017177

PATIENT
  Sex: Male

DRUGS (24)
  1. INTRON A [Suspect]
     Indication: RESPIRATORY PAPILLOMA
     Dosage: 10000000 IU, 5 X PER WEEK
     Route: 058
     Dates: start: 200211, end: 2002
  2. INTRON A [Suspect]
     Dosage: 10000000 IU, QD
     Route: 058
     Dates: start: 2002, end: 200307
  3. INTRON A [Suspect]
     Dosage: 2000000 IU, TIW
     Route: 058
     Dates: start: 200402
  4. INTRON A [Suspect]
     Dosage: 5000000 IU, TIW
     Route: 058
     Dates: start: 200404, end: 200412
  5. INTRON A [Suspect]
     Dosage: 3000000 IU, TIW
     Route: 058
     Dates: start: 200412, end: 200501
  6. NABILONE [Concomitant]
     Indication: DECREASED APPETITE
     Dosage: 1 MG, QD
     Route: 065
     Dates: start: 2004
  7. BUDESONIDE [Concomitant]
     Indication: ASTHMA
     Dosage: 200 MICROGRAM, BID
     Route: 065
     Dates: start: 200406
  8. FORMOTEROL FUMARATE [Concomitant]
     Indication: ASTHMA
     Dosage: 12 MICROGRAM, BID
     Route: 055
     Dates: start: 200406
  9. CIDOFOVIR [Concomitant]
     Indication: RESPIRATORY PAPILLOMA
     Dosage: 5 MG/KG, QW
     Route: 042
     Dates: start: 200407, end: 200408
  10. CIDOFOVIR [Concomitant]
     Dosage: 5 MG/KG, QOW
     Route: 042
     Dates: start: 200408, end: 200504
  11. CIDOFOVIR [Concomitant]
     Dosage: 5 ML, QW
     Route: 065
     Dates: start: 200911, end: 200912
  12. CIDOFOVIR [Concomitant]
     Dosage: 5 ML, QOW
     Route: 065
     Dates: end: 201002
  13. CIDOFOVIR [Concomitant]
     Dosage: 375 MG, QOD
     Route: 042
     Dates: start: 2012
  14. PROBENECID [Concomitant]
     Indication: DRUG TOXICITY PROPHYLAXIS
     Dosage: 4 G, QW
     Route: 065
     Dates: start: 200407, end: 200408
  15. PROBENECID [Concomitant]
     Dosage: 4 G, QOW
     Route: 065
     Dates: start: 200408
  16. FLUTICASONE PROPIONATE (+) SALMETEROL XINAFOATE [Concomitant]
     Indication: ASTHMA
     Dosage: UNK
     Route: 065
     Dates: start: 200411
  17. SINGULAIR [Concomitant]
     Indication: ASTHMA
     Dosage: 10 MG, QD
     Route: 065
     Dates: start: 200411
  18. CITALOPRAM [Concomitant]
     Indication: PRODUCT USED FOR UNKNOWN INDICATION
     Dosage: 10 MG, QD
     Route: 065
     Dates: start: 200502
  19. CLOXACILLIN [Concomitant]
     Indication: BETA HAEMOLYTIC STREPTOCOCCAL INFECTION
     Dosage: 500 MG, QID
     Route: 048
     Dates: start: 200910, end: 2009
  20. CLOXACILLIN [Concomitant]
     Indication: HAEMOPTYSIS
     Dosage: 500 MG, QID
     Route: 048
     Dates: start: 200912, end: 200912
  21. CLOXACILLIN [Concomitant]
     Indication: COUGH
  22. MOXIFLOXACIN HYDROCHLORIDE [Concomitant]
     Indication: COUGH
     Dosage: 400 MG, UNK
     Route: 048
     Dates: start: 20091215
  23. MOXIFLOXACIN HYDROCHLORIDE [Concomitant]
     Indication: HAEMOPTYSIS
  24. METRONIDAZOLE [Concomitant]
     Indication: CLOSTRIDIUM DIFFICILE INFECTION
     Dosage: 500 MG, TID
     Route: 048
     Dates: start: 2010, end: 2010

REACTIONS (27)
  - Asthenia [Unknown]
  - Fatigue [Unknown]
  - Hyperthermia [Unknown]
  - Decreased appetite [Unknown]
  - Asthma [Not Recovered/Not Resolved]
  - Mental impairment [Recovering/Resolving]
  - Depression [Unknown]
  - Pneumonia [Unknown]
  - Type 1 diabetes mellitus [Unknown]
  - Tracheal pain [Unknown]
  - Painful respiration [Unknown]
  - Beta haemolytic streptococcal infection [Unknown]
  - Disease progression [Unknown]
  - Breath odour [Unknown]
  - Odynophagia [Unknown]
  - Stridor [Unknown]
  - Dyspnoea exertional [Unknown]
  - Cough [Unknown]
  - Haemoptysis [Unknown]
  - Dyspnoea [Unknown]
  - Clostridium difficile infection [Unknown]
  - Loss of consciousness [Unknown]
  - Nephrolithiasis [Unknown]
  - Dyspnoea [Unknown]
  - Aphonia [Unknown]
  - Dyspnoea [Unknown]
  - Lung disorder [Unknown]
